FAERS Safety Report 21093949 (Version 1)
Quarter: 2022Q3

REPORT INFORMATION
  Report Type: Spontaneous
  Country: US (occurrence: None)
  Receive Date: 20220717
  Receipt Date: 20220717
  Transmission Date: 20221027
  Serious: Yes (Other)
  Sender: FDA-Public Use
  Company Number: None

PATIENT
  Age: 66 Year
  Sex: Male
  Weight: 94.5 kg

DRUGS (1)
  1. PAXLOVID [Suspect]
     Active Substance: NIRMATRELVIR\RITONAVIR
     Indication: COVID-19
     Dates: start: 20220709, end: 20220714

REACTIONS (5)
  - Focal dyscognitive seizures [None]
  - Fall [None]
  - Limb injury [None]
  - Anticonvulsant drug level decreased [None]
  - Drug interaction [None]

NARRATIVE: CASE EVENT DATE: 20220715
